FAERS Safety Report 24305826 (Version 1)
Quarter: 2024Q3

REPORT INFORMATION
  Report Type: Spontaneous
  Country: JP (occurrence: JP)
  Receive Date: 20240911
  Receipt Date: 20240911
  Transmission Date: 20241016
  Serious: Yes (Other)
  Sender: RANBAXY
  Company Number: JP-SUN PHARMACEUTICAL INDUSTRIES LTD-2024R1-466989

PATIENT
  Age: 9 Year
  Sex: Female

DRUGS (1)
  1. METHIMAZOLE [Suspect]
     Active Substance: METHIMAZOLE
     Indication: Graves^ disease
     Dosage: 10 MILLIGRAM, QD
     Route: 065

REACTIONS (3)
  - Hyperthyroidism [Recovering/Resolving]
  - Loss of consciousness [Unknown]
  - Thyroxine free decreased [Recovering/Resolving]
